FAERS Safety Report 7399152-3 (Version None)
Quarter: 2011Q1

REPORT INFORMATION
  Report Type: 
  Country: None (occurrence: None)
  Receive Date: 20110328
  Receipt Date: 20110321
  Transmission Date: 20110831
  Serious: Yes (Other)
  Sender: FDA-Public Use
  Company Number: TRP_07605_2011

PATIENT

DRUGS (2)
  1. PEG-INTRON [Suspect]
     Indication: HEPATITIS C
     Dosage: DF
  2. RIBAVIRIN [Suspect]
     Indication: HEPATITIS C
     Dosage: DF

REACTIONS (3)
  - LYMPHOPENIA [None]
  - TUBERCULOSIS [None]
  - CD4 LYMPHOCYTES DECREASED [None]
